FAERS Safety Report 21343246 (Version 3)
Quarter: 2022Q3

REPORT INFORMATION
  Report Type: Spontaneous
  Country: ID (occurrence: ID)
  Receive Date: 20220916
  Receipt Date: 20220927
  Transmission Date: 20221027
  Serious: Yes (Death, Hospitalization)
  Sender: FDA-Public Use
  Company Number: ID-PFIZER INC-PV202200064908

PATIENT
  Age: 76 Year
  Sex: Female
  Weight: 47 kg

DRUGS (3)
  1. IBRANCE [Suspect]
     Active Substance: PALBOCICLIB
     Indication: Breast cancer
     Dosage: 100 MG, CYCLIC (1X/DAY, 3 WEEKS ON/1 WEEK OFF)
     Route: 048
     Dates: start: 202206, end: 20220911
  2. NEUROGESIC [DICLOFENAC DIETHYLAMINE] [Concomitant]
     Indication: Analgesic therapy
  3. ORINOX [ETORICOXIB] [Concomitant]
     Indication: Analgesic therapy

REACTIONS (5)
  - Second primary malignancy [Fatal]
  - Abdominal neoplasm [Fatal]
  - Haemoglobin decreased [Not Recovered/Not Resolved]
  - White blood cell count decreased [Not Recovered/Not Resolved]
  - Platelet count abnormal [Not Recovered/Not Resolved]

NARRATIVE: CASE EVENT DATE: 20220918
